FAERS Safety Report 9457868 (Version 1)
Quarter: 2013Q3

REPORT INFORMATION
  Report Type: Spontaneous
  Country: BR (occurrence: BR)
  Receive Date: 20130814
  Receipt Date: 20130814
  Transmission Date: 20140515
  Serious: Yes (Hospitalization)
  Sender: FDA-Public Use
  Company Number: BR-009507513-1308BRA005745

PATIENT
  Sex: Female

DRUGS (3)
  1. VICTRELIS [Suspect]
     Dosage: UNK
     Route: 048
     Dates: start: 20130607, end: 20130723
  2. RIBAVIRIN [Suspect]
     Dosage: UNK
     Route: 048
     Dates: start: 20130607, end: 20130723
  3. INTERFERON (UNSPECIFIED) [Concomitant]
     Dosage: UNK
     Dates: start: 20130607, end: 20130723

REACTIONS (1)
  - Decreased immune responsiveness [Unknown]
